FAERS Safety Report 5626939-7 (Version None)
Quarter: 2008Q1

REPORT INFORMATION
  Report Type: 
  Country: None (occurrence: None)
  Receive Date: 20080212
  Receipt Date: 20080129
  Transmission Date: 20080703
  Serious: Yes (Death)
  Sender: FDA-Public Use
  Company Number: MPS1-1000020

PATIENT
  Age: 11 Year
  Sex: Female
  Weight: 22 kg

DRUGS (1)
  1. ALDURAZYME [Suspect]
     Indication: MUCOPOLYSACCHARIDOSIS
     Dosage: 58 MG, Q4W, INTRAVENOUS
     Route: 042

REACTIONS (1)
  - PNEUMONIA [None]
